FAERS Safety Report 5447821-4 (Version None)
Quarter: 2007Q3

REPORT INFORMATION
  Report Type: 
  Country: None (occurrence: None)
  Receive Date: 20070910
  Receipt Date: 20070829
  Transmission Date: 20080115
  Serious: Yes (Other)
  Sender: FDA-Public Use
  Company Number: US-PFIZER INC-2007074394

PATIENT
  Sex: Female
  Weight: 63.636 kg

DRUGS (2)
  1. CHANTIX [Suspect]
     Indication: SMOKING CESSATION THERAPY
     Dates: start: 20070723, end: 20070827
  2. SEROQUEL [Concomitant]

REACTIONS (13)
  - ACTIVITIES OF DAILY LIVING IMPAIRED [None]
  - ANOREXIA [None]
  - BRUXISM [None]
  - DEHYDRATION [None]
  - DYSKINESIA [None]
  - LACK OF SPONTANEOUS SPEECH [None]
  - MUSCLE SPASMS [None]
  - MUSCULAR WEAKNESS [None]
  - SEDATION [None]
  - STRESS [None]
  - TONGUE SPASM [None]
  - TOOTH INFECTION [None]
  - VISION BLURRED [None]
